FAERS Safety Report 12290197 (Version 3)
Quarter: 2017Q2

REPORT INFORMATION
  Report Type: Not Available
  Country: JP (occurrence: JP)
  Receive Date: 20160421
  Receipt Date: 20170509
  Transmission Date: 20170830
  Serious: Yes (Other)
  Sender: FDA-Public Use
  Company Number: JP-AKORN-1943

PATIENT
  Age: 39 Year
  Sex: Female

DRUGS (1)
  1. ZIOPTAN [Suspect]
     Active Substance: TAFLUPROST

REACTIONS (6)
  - Hysterectomy [None]
  - Osteoporosis [Unknown]
  - Dry eye [Recovered/Resolved]
  - Viral upper respiratory tract infection [Unknown]
  - Cough [Recovered/Resolved]
  - Hyperlipidaemia [Recovered/Resolved]

NARRATIVE: CASE EVENT DATE: 20140212
